FAERS Safety Report 23858099 (Version 1)
Quarter: 2024Q2

REPORT INFORMATION
  Report Type: Spontaneous
  Country: US (occurrence: None)
  Receive Date: 20240514
  Receipt Date: 20240514
  Transmission Date: 20240716
  Serious: No
  Sender: FDA-Public Use
  Company Number: None

PATIENT
  Age: 21 Year
  Sex: Female
  Weight: 63 kg

DRUGS (3)
  1. MONISTAT 3 [Suspect]
     Active Substance: MICONAZOLE NITRATE
     Dates: start: 20240503, end: 20240507
  2. mirena iud, [Concomitant]
  3. bupropion 150mg XR [Concomitant]

REACTIONS (2)
  - Burning sensation [None]
  - Pruritus [None]

NARRATIVE: CASE EVENT DATE: 20240503
